FAERS Safety Report 4490764-3 (Version None)
Quarter: 2004Q4

REPORT INFORMATION
  Report Type: 
  Country: None (occurrence: None)
  Receive Date: 20041020
  Receipt Date: 20041007
  Transmission Date: 20050328
  Serious: Yes (Other)
  Sender: FDA-Public Use
  Company Number: B0347027A

PATIENT
  Age: 13 Year
  Sex: Female

DRUGS (3)
  1. PAXIL [Suspect]
     Indication: DEPRESSION
     Dosage: 30 MG PER DAY, ORAL
     Route: 048
  2. FLUVOXAMINE MALEATE [Suspect]
     Indication: DEPRESSION
  3. VALPROIC [Concomitant]

REACTIONS (3)
  - CYST [None]
  - EPILEPSY [None]
  - NERVOUS SYSTEM DISORDER [None]
